FAERS Safety Report 5207898-8 (Version None)
Quarter: 2007Q1

REPORT INFORMATION
  Report Type: 
  Country: None (occurrence: None)
  Receive Date: 20070114
  Receipt Date: 20070111
  Transmission Date: 20070707
  Serious: Yes (Congenital Anomaly)
  Sender: FDA-Public Use
  Company Number: JP-ALLERGAN-0609186US

PATIENT
  Sex: Female

DRUGS (1)
  1. GATIFLO [Suspect]
     Indication: DRUG EXPOSURE DURING PREGNANCY
     Dosage: UNK, UNK
     Route: 064
     Dates: start: 20060104, end: 20060124

REACTIONS (2)
  - DACRYOSTENOSIS CONGENITAL [None]
  - DRUG EXPOSURE DURING PREGNANCY [None]
